FAERS Safety Report 6058107-1 (Version None)
Quarter: 2009Q1

REPORT INFORMATION
  Report Type: 
  Country: None (occurrence: None)
  Receive Date: 20090130
  Receipt Date: 20090116
  Transmission Date: 20090719
  Serious: Yes (Death)
  Sender: FDA-Public Use
  Company Number: US-RANBAXY-2009RR-21345

PATIENT
  Age: 38 Year
  Sex: Male

DRUGS (2)
  1. GLIMEPIRIDE [Suspect]
     Indication: COMPLETED SUICIDE
  2. TIZANIDINE HCL [Suspect]
     Indication: COMPLETED SUICIDE

REACTIONS (1)
  - COMPLETED SUICIDE [None]
